FAERS Safety Report 7041744-5 (Version None)
Quarter: 2010Q4

REPORT INFORMATION
  Report Type: 
  Country: None (occurrence: None)
  Receive Date: 20101013
  Receipt Date: 20091204
  Transmission Date: 20110411
  Serious: No
  Sender: FDA-Public Use
  Company Number: AU-ASTRAZENECA-2009SE30043

PATIENT
  Age: 83 Year
  Sex: Female

DRUGS (4)
  1. SYMBICORT [Suspect]
     Indication: CHRONIC OBSTRUCTIVE PULMONARY DISEASE
     Route: 055
  2. NEXIUM [Suspect]
     Indication: GASTROOESOPHAGEAL REFLUX DISEASE
     Route: 048
  3. SPIRIVA [Concomitant]
  4. ALBUTEROL [Concomitant]

REACTIONS (1)
  - OSTEOARTHRITIS [None]
